FAERS Safety Report 5508346-0 (Version None)
Quarter: 2007Q4

REPORT INFORMATION
  Report Type: 
  Country: None (occurrence: None)
  Receive Date: 20071106
  Receipt Date: 20071025
  Transmission Date: 20080405
  Serious: Yes (Hospitalization)
  Sender: FDA-Public Use
  Company Number: US-GENENTECH-250372

PATIENT
  Sex: Female
  Weight: 72.5 kg

DRUGS (4)
  1. BEVACIZUMAB [Suspect]
     Indication: COLON CANCER
     Dosage: 5 MG/KG, Q2W
     Route: 042
     Dates: start: 20070724
  2. OXALIPLATIN [Suspect]
     Indication: COLON CANCER
     Dosage: UNK, Q2W
     Route: 042
     Dates: start: 20070724
  3. FLUOROURACIL [Suspect]
     Indication: COLON CANCER
     Dosage: UNK, Q2W
     Route: 042
     Dates: start: 20070724
  4. ENOXAPARIN SODIUM [Concomitant]
     Indication: DRUG USE FOR UNKNOWN INDICATION
     Route: 058

REACTIONS (1)
  - SMALL INTESTINAL OBSTRUCTION [None]
